FAERS Safety Report 6130138-2 (Version None)
Quarter: 2009Q1

REPORT INFORMATION
  Report Type: 
  Country: None (occurrence: None)
  Receive Date: 20090324
  Receipt Date: 20090318
  Transmission Date: 20090719
  Serious: Yes (Life-Threatening, Other)
  Sender: FDA-Public Use
  Company Number: ZM-BRISTOL-MYERS SQUIBB COMPANY-14517114

PATIENT
  Age: 50 Year
  Sex: Male
  Weight: 65 kg

DRUGS (4)
  1. STAVUDINE [Suspect]
     Indication: HIV INFECTION
     Dosage: INTERRUPTED ON 19FEB2009
     Route: 048
     Dates: start: 20090203
  2. EFAVIRENZ [Suspect]
     Indication: HIV INFECTION
     Dosage: QHS (1 AT BED TIME) INTERRUPTED ON 19FEB2009
     Route: 048
     Dates: start: 20081211
  3. LAMIVUDINE [Suspect]
     Indication: HIV INFECTION
     Dosage: INTERRUPTED ON 19FEB2009
     Route: 048
     Dates: start: 20090203
  4. COMBIVIR [Suspect]
     Indication: HIV INFECTION
     Dosage: 1DF=300/150MG.
     Route: 048
     Dates: start: 20081211, end: 20090203

REACTIONS (2)
  - ANAEMIA [None]
  - NEUTROPENIA [None]
